FAERS Safety Report 9376159 (Version 1)
Quarter: 2013Q3

REPORT INFORMATION
  Report Type: Spontaneous
  Country: US (occurrence: US)
  Receive Date: 20130701
  Receipt Date: 20130701
  Transmission Date: 20140515
  Serious: Yes (Other)
  Sender: FDA-Public Use
  Company Number: GXBR2013US001287

PATIENT
  Age: 42 Year
  Sex: Female

DRUGS (2)
  1. CEFTRIAXONE [Suspect]
     Indication: SEXUALLY TRANSMITTED DISEASE
     Dosage: 250 MG, UNK
     Route: 030
     Dates: start: 20130418, end: 20130418
  2. AZITHROMYCIN [Concomitant]
     Indication: SEXUALLY TRANSMITTED DISEASE
     Dosage: 1 G, UNK
     Route: 048

REACTIONS (1)
  - Syncope [Recovered/Resolved]
